FAERS Safety Report 7081347-X (Version None)
Quarter: 2010Q4

REPORT INFORMATION
  Report Type: 
  Country: None (occurrence: None)
  Receive Date: 20101103
  Receipt Date: 20101022
  Transmission Date: 20110411
  Serious: Yes (Hospitalization)
  Sender: FDA-Public Use
  Company Number: PHHY2010US65388

PATIENT
  Sex: Female
  Weight: 97.2 kg

DRUGS (1)
  1. EXJADE [Suspect]
     Indication: APLASTIC ANAEMIA
     Dosage: 500 MG DAILY
     Route: 048
     Dates: start: 20100708

REACTIONS (3)
  - DEHYDRATION [None]
  - DRUG DOSE OMISSION [None]
  - NAUSEA [None]
